FAERS Safety Report 12767901 (Version 2)
Quarter: 2016Q4

REPORT INFORMATION
  Report Type: Spontaneous
  Country: US (occurrence: US)
  Receive Date: 20160921
  Receipt Date: 20161128
  Transmission Date: 20170207
  Serious: No
  Sender: FDA-Public Use
  Company Number: US-TEIKOKU PHARMA USA-TPU2016-00556

PATIENT
  Age: 75 Year
  Sex: Male
  Weight: 124.85 kg

DRUGS (1)
  1. LIDOCAINE PATCH [Suspect]
     Active Substance: LIDOCAINE
     Indication: PRODUCT USED FOR UNKNOWN INDICATION
     Dosage: APPLY TO ANKLES
     Route: 061
     Dates: start: 20160728, end: 20161010

REACTIONS (2)
  - Application site pain [Recovering/Resolving]
  - Application site exfoliation [Unknown]

NARRATIVE: CASE EVENT DATE: 20160728
